FAERS Safety Report 9700875 (Version 1)
Quarter: 2013Q4

REPORT INFORMATION
  Report Type: Spontaneous
  Country: JP (occurrence: JP)
  Receive Date: 20131121
  Receipt Date: 20131121
  Transmission Date: 20140711
  Serious: Yes (Other)
  Sender: FDA-Public Use
  Company Number: JP-JNJFOC-20131109485

PATIENT
  Age: 50 Year
  Sex: Male

DRUGS (1)
  1. DOXIL [Suspect]
     Indication: KAPOSI^S SARCOMA AIDS RELATED
     Dosage: TOTAL OF 5 COURSES
     Route: 042

REACTIONS (1)
  - Cytomegalovirus chorioretinitis [Unknown]
